FAERS Safety Report 5479534-7 (Version None)
Quarter: 2007Q3

REPORT INFORMATION
  Report Type: 
  Country: None (occurrence: None)
  Receive Date: 20070911
  Receipt Date: 20070319
  Transmission Date: 20080115
  Serious: Yes (Other)
  Sender: FDA-Public Use
  Company Number: 2006-0010604

PATIENT
  Age: 48 Year
  Sex: Female
  Weight: 75.2971 kg

DRUGS (3)
  1. ATRIPLA [Suspect]
     Indication: HIV INFECTION
     Dosage: 1 DOSAGE FORMS, 1 IN 1 D, ORAL
     Route: 048
     Dates: start: 20060912
  2. BACTRIM [Concomitant]
  3. AZITHROMYCIN [Concomitant]

REACTIONS (1)
  - VISION BLURRED [None]
